FAERS Safety Report 7184037-8 (Version None)
Quarter: 2010Q4

REPORT INFORMATION
  Report Type: 
  Country: None (occurrence: None)
  Receive Date: 20101222
  Receipt Date: 20101209
  Transmission Date: 20110411
  Serious: Yes (Hospitalization, Disabling)
  Sender: FDA-Public Use
  Company Number: PHHY2008JP10886

PATIENT
  Sex: Male
  Weight: 3 kg

DRUGS (2)
  1. VALSARTAN [Suspect]
     Indication: HYPERTENSION
     Dosage: MATERNAL DOSE: 80 MG/DAY
     Route: 064
     Dates: start: 20071009, end: 20071201
  2. VALSARTAN [Suspect]
     Dosage: MATERNAL DOSE: 120 MG/DAY
     Route: 064
     Dates: start: 20071202

REACTIONS (10)
  - DRUG EXPOSURE DURING PREGNANCY [None]
  - FLOPPY INFANT [None]
  - KIDNEY MALFORMATION [None]
  - OLIGOHYDRAMNIOS [None]
  - OXYGEN SATURATION DECREASED [None]
  - PNEUMOTHORAX [None]
  - POTTER'S SYNDROME [None]
  - RENAL FAILURE CHRONIC [None]
  - RENAL HYPOPLASIA [None]
  - SWELLING [None]
